FAERS Safety Report 8186247-X (Version None)
Quarter: 2012Q1

REPORT INFORMATION
  Report Type: 
  Country: None (occurrence: None)
  Receive Date: 20120301
  Receipt Date: 20120222
  Transmission Date: 20120608
  Serious: Yes (Other)
  Sender: FDA-Public Use
  Company Number: DSJ-2012-01708

PATIENT
  Age: 79 Year
  Sex: Male

DRUGS (3)
  1. ACTOS (PIOGLITAZONE) (PIOGLITAZONE) [Concomitant]
  2. OLMESARTAN MEDOXOMIL [Suspect]
     Indication: PRODUCT USED FOR UNKNOWN INDICATION
     Dosage: 20 MG, PER ORAL
     Route: 048
     Dates: start: 20111109
  3. AMLODIPINE BESILATE (AMLODIPINE BESILATE) (AMLODIPINE BESILATE) [Concomitant]

REACTIONS (1)
  - NO ADVERSE EVENT [None]
